FAERS Safety Report 11274281 (Version 2)
Quarter: 2015Q3

REPORT INFORMATION
  Report Type: Spontaneous
  Country: JP (occurrence: JP)
  Receive Date: 20150715
  Receipt Date: 20150729
  Transmission Date: 20151125
  Serious: Yes (Other)
  Sender: FDA-Public Use
  Company Number: JP-ELI_LILLY_AND_COMPANY-JP201412009181

PATIENT
  Age: 24 Year
  Sex: Female

DRUGS (3)
  1. KAMISHOYOSAN                       /07987101/ [Concomitant]
     Indication: PREMENSTRUAL SYNDROME
     Dosage: 7.5 G, QD
     Route: 048
     Dates: start: 20140804, end: 20141204
  2. QUETIAPINE [Concomitant]
     Active Substance: QUETIAPINE
     Indication: IRRITABILITY
     Dosage: 25 MG, QD
     Route: 048
     Dates: start: 20140125, end: 20141204
  3. STRATTERA [Suspect]
     Active Substance: ATOMOXETINE HYDROCHLORIDE
     Indication: ATTENTION DEFICIT/HYPERACTIVITY DISORDER
     Dosage: 50 MG, QD
     Route: 048
     Dates: start: 20131210, end: 20141204

REACTIONS (2)
  - Exposure during pregnancy [Recovered/Resolved]
  - Abortion spontaneous [Recovered/Resolved]

NARRATIVE: CASE EVENT DATE: 201501
